FAERS Safety Report 9337129 (Version 1)
Quarter: 2013Q2

REPORT INFORMATION
  Report Type: Spontaneous
  Country: GB (occurrence: GB)
  Receive Date: 20130607
  Receipt Date: 20130607
  Transmission Date: 20140414
  Serious: Yes (Life-Threatening, Hospitalization)
  Sender: FDA-Public Use
  Company Number: GB-PFIZER INC-2013150692

PATIENT
  Age: 24 Year
  Sex: Female
  Weight: 60 kg

DRUGS (2)
  1. EFEXOR XL [Suspect]
     Indication: DEPRESSION
     Dosage: 150 MG, 1X/DAY
     Route: 048
     Dates: end: 20130507
  2. EFEXOR XL [Suspect]
     Indication: SUICIDAL IDEATION
     Dosage: 225 MG, DAILY
     Route: 048
     Dates: start: 20130508, end: 20130524

REACTIONS (2)
  - Dissociation [Not Recovered/Not Resolved]
  - Overdose [Not Recovered/Not Resolved]
